FAERS Safety Report 4276587-9 (Version None)
Quarter: 2004Q1

REPORT INFORMATION
  Report Type: 
  Country: None (occurrence: None)
  Receive Date: 20040121
  Receipt Date: 20040115
  Transmission Date: 20041129
  Serious: Yes (Life-Threatening)
  Sender: FDA-Public Use
  Company Number: WAES 0401USA01206

PATIENT
  Age: 61 Year
  Sex: Female

DRUGS (6)
  1. PREMARIN [Concomitant]
  2. HYDRODIURIL [Concomitant]
     Route: 048
  3. ATIVAN [Concomitant]
  4. POTASSIUM CHLORIDE [Concomitant]
  5. ZOCOR [Suspect]
     Indication: HYPERCHOLESTEROLAEMIA
     Route: 048
     Dates: start: 20031101, end: 20040101
  6. ZOCOR [Suspect]
     Route: 048
     Dates: start: 20040101, end: 20040101

REACTIONS (7)
  - ARTHRALGIA [None]
  - CHEST PAIN [None]
  - CHILLS [None]
  - HOT FLUSH [None]
  - MYALGIA [None]
  - PALPITATIONS [None]
  - SKIN DISCOLOURATION [None]
